FAERS Safety Report 9639029 (Version 1)
Quarter: 2013Q4

REPORT INFORMATION
  Report Type: Report from Study
  Country: US (occurrence: US)
  Receive Date: 20131022
  Receipt Date: 20131022
  Transmission Date: 20140711
  Serious: No
  Sender: FDA-Public Use
  Company Number: US-ABBVIE-12P-163-0996861-00

PATIENT
  Sex: Female
  Weight: 72.64 kg

DRUGS (3)
  1. LUPRON DEPOT [Suspect]
     Indication: PROPHYLAXIS
     Dates: start: 201202
  2. LUPRON DEPOT [Suspect]
     Indication: INFERTILITY
  3. ZYRTEC [Concomitant]
     Indication: MECHANICAL URTICARIA

REACTIONS (1)
  - Off label use [Unknown]
